FAERS Safety Report 25017214 (Version 1)
Quarter: 2025Q1

REPORT INFORMATION
  Report Type: Other
  Country: CN (occurrence: CN)
  Receive Date: 20250227
  Receipt Date: 20250227
  Transmission Date: 20250408
  Serious: Yes (Hospitalization)
  Sender: Phathom Pharmaceuticals
  Company Number: CN-PHATHOM PHARMACEUTICALS INC.-2025PHT00404

PATIENT
  Age: 45 Year
  Sex: Male
  Weight: 74 kg

DRUGS (4)
  1. VONOPRAZAN [Suspect]
     Active Substance: VONOPRAZAN
     Indication: Helicobacter infection
     Dosage: 20 MG, 2X/DAY
     Route: 048
     Dates: start: 20250108, end: 20250116
  2. FURAZOLIDONE [Suspect]
     Active Substance: FURAZOLIDONE
     Indication: Helicobacter infection
     Dosage: 0.1 G, 2X/DAY
     Route: 048
     Dates: start: 20250108, end: 20250116
  3. TETRACYCLINE [Suspect]
     Active Substance: TETRACYCLINE
     Indication: Helicobacter infection
     Dosage: 0.5 G, 3X/DAY
     Route: 048
     Dates: start: 20250108, end: 20250116
  4. BISMUTH SUBCITRATE [Concomitant]
     Active Substance: BISMUTH SUBCITRATE
     Dates: start: 20250108, end: 20250116

REACTIONS (1)
  - Urticaria [Recovering/Resolving]

NARRATIVE: CASE EVENT DATE: 20250115
